FAERS Safety Report 14849548 (Version 2)
Quarter: 2018Q2

REPORT INFORMATION
  Report Type: Spontaneous
  Country: PL (occurrence: PL)
  Receive Date: 20180504
  Receipt Date: 20180507
  Transmission Date: 20180711
  Serious: Yes (Hospitalization, Other)
  Sender: FDA-Public Use
  Company Number: PHHY2018PL001055

PATIENT
  Age: 41 Year
  Sex: Female

DRUGS (2)
  1. GROPRINOSIN [Suspect]
     Active Substance: INOSINE PRANOBEX
     Indication: UPPER RESPIRATORY TRACT INFECTION
     Dosage: 500 MG, UNK
     Route: 048
     Dates: start: 20171217, end: 20171224
  2. DICLOFENAC [Suspect]
     Active Substance: DICLOFENAC
     Indication: UPPER RESPIRATORY TRACT INFECTION
     Dosage: UNK
     Route: 048

REACTIONS (5)
  - Glomerulonephritis [Recovering/Resolving]
  - Swelling face [Recovering/Resolving]
  - Acute kidney injury [Recovering/Resolving]
  - Hepatic function abnormal [Recovering/Resolving]
  - Joint swelling [Recovering/Resolving]

NARRATIVE: CASE EVENT DATE: 20171224
